FAERS Safety Report 4353327-6 (Version None)
Quarter: 2004Q2

REPORT INFORMATION
  Report Type: 
  Country: None (occurrence: None)
  Receive Date: 20040504
  Receipt Date: 20040504
  Transmission Date: 20050107
  Serious: No
  Sender: FDA-Public Use
  Company Number: None

PATIENT
  Sex: Male
  Weight: 116 kg

DRUGS (1)
  1. LANTUS [Suspect]
     Indication: DIABETES MELLITUS
     Dosage: 100 UNITS HS SQ
     Route: 058

REACTIONS (5)
  - AGGRESSION [None]
  - AGITATION [None]
  - BLOOD GLUCOSE DECREASED [None]
  - MEDICATION ERROR [None]
  - MEMORY IMPAIRMENT [None]
